FAERS Safety Report 7812928-0 (Version None)
Quarter: 2011Q4

REPORT INFORMATION
  Report Type: 
  Country: None (occurrence: None)
  Receive Date: 20111013
  Receipt Date: 20111012
  Transmission Date: 20120403
  Serious: Yes (Other)
  Sender: FDA-Public Use
  Company Number: JP-PFIZER INC-2011243168

PATIENT
  Age: 27 Year
  Sex: Female

DRUGS (1)
  1. ZITHROMAX [Suspect]
     Dosage: 500 MG/DAY
     Route: 048
     Dates: start: 20111007, end: 20111009

REACTIONS (2)
  - EAR DISCOMFORT [None]
  - HYPOACUSIS [None]
